FAERS Safety Report 8019280-9 (Version None)
Quarter: 2011Q4

REPORT INFORMATION
  Report Type: 
  Country: None (occurrence: None)
  Receive Date: 20111229
  Receipt Date: 20111213
  Transmission Date: 20120403
  Serious: Yes (Hospitalization, Other)
  Sender: FDA-Public Use
  Company Number: US-DEXPHARM-20112057

PATIENT
  Age: 23 Year
  Sex: Female

DRUGS (1)
  1. OMEPRAZOLE [Suspect]
     Indication: GASTROOESOPHAGEAL REFLUX DISEASE

REACTIONS (7)
  - TACHYCARDIA [None]
  - PYREXIA [None]
  - GASTRITIS EROSIVE [None]
  - GASTRITIS [None]
  - CHILLS [None]
  - VOMITING [None]
  - LEUKOCYTOSIS [None]
